FAERS Safety Report 7569268-7 (Version None)
Quarter: 2011Q2

REPORT INFORMATION
  Report Type: 
  Country: None (occurrence: None)
  Receive Date: 20110623
  Receipt Date: 20110616
  Transmission Date: 20111010
  Serious: Yes (Hospitalization, Other)
  Sender: FDA-Public Use
  Company Number: PHEH2007US04437

PATIENT
  Sex: Female

DRUGS (56)
  1. TAMOXIFEN CITRATE [Concomitant]
     Dosage: UNK
     Dates: start: 20060201
  2. SEPTOCAINE                              /DEN/ [Concomitant]
  3. DEXAMETHASONE [Concomitant]
     Dosage: 4 MG, UNK
  4. ELAVIL [Concomitant]
  5. FLEXERIL [Concomitant]
  6. NEURONTIN [Concomitant]
     Indication: NEUROPATHY PERIPHERAL
     Dosage: 100 MG, TID
  7. HYDROMORPHONE HCL [Concomitant]
     Dosage: 2 MG, UNK
  8. FLUCONAZOLE [Concomitant]
     Dosage: 100 MG, UNK
  9. ADRIAMYCIN PFS [Concomitant]
     Dosage: UNK
  10. METOCLOPRAMIDE [Concomitant]
  11. AMITRIPTYLINE HCL [Concomitant]
  12. KEFLEX [Concomitant]
  13. MIRAPEX [Concomitant]
  14. LORAZEPAM [Concomitant]
  15. CLINDAMYCIN [Concomitant]
     Dosage: 300 MG, UNK
  16. CALCIUM CARBONATE [Concomitant]
  17. NOLVADEX [Concomitant]
  18. CYMBALTA [Concomitant]
  19. PERCOCET [Concomitant]
  20. VOLTAREN [Concomitant]
  21. PRAMIPEXOLE DIHYDROCHLORIDE [Concomitant]
     Indication: FIBROMYALGIA
  22. NAMENDA [Concomitant]
     Indication: FIBROMYALGIA
  23. LIDODERM [Concomitant]
  24. MARIJUANA [Concomitant]
  25. ORUDIS [Concomitant]
  26. NEURONTIN [Concomitant]
     Dosage: 300 MG, TID
  27. ULTRAM [Concomitant]
  28. VICODIN [Concomitant]
  29. OXYCONTIN [Concomitant]
     Dosage: 40 MG, UNK
  30. PENICILLIN VK [Concomitant]
     Dosage: 500 MG, UNK
  31. NEULASTA [Concomitant]
     Indication: GRANULOCYTOPENIA
  32. CALCIUM CARBONATE [Concomitant]
  33. ZOMETA [Suspect]
     Indication: BREAST CANCER
     Dosage: 4 MG EVERY 3 MONTHS
     Route: 042
     Dates: start: 20050919, end: 20060301
  34. EFFEXOR [Concomitant]
  35. NITROUS OXIDE [Concomitant]
  36. OXYCODONE HCL [Concomitant]
     Dosage: 5 MG, UNK
  37. CEPHALEXIN [Concomitant]
     Dosage: 500 MG, UNK
  38. CYTOXAN [Concomitant]
     Dosage: UNK
     Dates: end: 20050901
  39. ROCEPHIN [Concomitant]
  40. LASIX [Concomitant]
  41. PROCRIT                            /00909301/ [Concomitant]
  42. ATENOLOL [Concomitant]
  43. EFFEXOR XR [Concomitant]
  44. CHEMOTHERAPEUTICS NOS [Concomitant]
  45. WELLBUTRIN [Concomitant]
  46. UNASYN [Concomitant]
  47. ADVIL LIQUI-GELS [Concomitant]
  48. ATIVAN [Concomitant]
  49. RADIATION THERAPY [Concomitant]
  50. MEPIVACAINE HCL [Concomitant]
  51. OXYCONTIN [Concomitant]
     Dosage: 60 MG, QD
  52. VITAMIN D [Concomitant]
  53. CHANTIX [Concomitant]
  54. DOXYCYCLINE [Concomitant]
  55. TYLENOL-500 [Concomitant]
  56. CEFAZOLIN [Concomitant]

REACTIONS (100)
  - CARDIAC FAILURE CONGESTIVE [None]
  - PAIN [None]
  - EMOTIONAL DISTRESS [None]
  - MASTICATION DISORDER [None]
  - MYALGIA [None]
  - BLADDER PROLAPSE [None]
  - FALL [None]
  - POLLAKIURIA [None]
  - FATIGUE [None]
  - BONE PAIN [None]
  - MAJOR DEPRESSION [None]
  - BREAST FIBROSIS [None]
  - URINARY INCONTINENCE [None]
  - DYSURIA [None]
  - SCIATICA [None]
  - NECK PAIN [None]
  - VERTIGO [None]
  - BLOOD PRESSURE INCREASED [None]
  - NAUSEA [None]
  - DEFORMITY [None]
  - ANXIETY [None]
  - DECREASED INTEREST [None]
  - ACCIDENT [None]
  - LACERATION [None]
  - HYPOAESTHESIA [None]
  - CARDIAC MURMUR [None]
  - CYSTOCELE [None]
  - DRUG WITHDRAWAL SYNDROME [None]
  - SLEEP DISORDER [None]
  - SKIN EXFOLIATION [None]
  - DENTAL CARIES [None]
  - FOOD CRAVING [None]
  - BREAST NECROSIS [None]
  - CELLULITIS [None]
  - WEIGHT INCREASED [None]
  - TREMOR [None]
  - HYPONATRAEMIA [None]
  - OSTEONECROSIS OF JAW [None]
  - BONE DISORDER [None]
  - MIGRAINE [None]
  - ANAEMIA [None]
  - APPETITE DISORDER [None]
  - TOOTHACHE [None]
  - SINUS DISORDER [None]
  - IMPAIRED HEALING [None]
  - DRUG ABUSE [None]
  - PARAESTHESIA [None]
  - STAPHYLOCOCCAL INFECTION [None]
  - HIDRADENITIS [None]
  - INFECTION [None]
  - GENERAL PHYSICAL HEALTH DETERIORATION [None]
  - SELF INJURIOUS BEHAVIOUR [None]
  - EATING DISORDER [None]
  - ASTHENIA [None]
  - MENSTRUAL DISORDER [None]
  - TOOTH FRACTURE [None]
  - PAIN IN EXTREMITY [None]
  - SEXUAL DYSFUNCTION [None]
  - HYPOPHAGIA [None]
  - BONE EROSION [None]
  - FACIAL PARESIS [None]
  - INSOMNIA [None]
  - GAIT DISTURBANCE [None]
  - COUGH [None]
  - BLADDER DYSFUNCTION [None]
  - HAEMORRHOIDS [None]
  - HYPOKALAEMIA [None]
  - TOOTH DISORDER [None]
  - WEIGHT DECREASED [None]
  - VOMITING [None]
  - DIARRHOEA [None]
  - FIBROMYALGIA [None]
  - CYSTITIS [None]
  - LOOSE TOOTH [None]
  - MOUTH ULCERATION [None]
  - FACIAL NERVE DISORDER [None]
  - EXCORIATION [None]
  - OEDEMA PERIPHERAL [None]
  - SACROILIITIS [None]
  - CHILLS [None]
  - ARTHRALGIA [None]
  - PARALYSIS [None]
  - MUSCULOSKELETAL PAIN [None]
  - DYSPNOEA EXERTIONAL [None]
  - HEART RATE INCREASED [None]
  - COLONIC POLYP [None]
  - DIASTOLIC DYSFUNCTION [None]
  - TOOTH ABSCESS [None]
  - TOOTH LOSS [None]
  - RECTOCELE [None]
  - CEREBROVASCULAR ACCIDENT [None]
  - CHEST PAIN [None]
  - HOT FLUSH [None]
  - GINGIVAL PAIN [None]
  - PYREXIA [None]
  - POST-TRAUMATIC STRESS DISORDER [None]
  - MUSCULOSKELETAL STIFFNESS [None]
  - AMNESIA [None]
  - NEUROPATHY PERIPHERAL [None]
  - FLUID RETENTION [None]
